FAERS Safety Report 16978102 (Version 2)
Quarter: 2019Q4

REPORT INFORMATION
  Report Type: Spontaneous
  Country: AU (occurrence: AU)
  Receive Date: 20191031
  Receipt Date: 20191122
  Transmission Date: 20200122
  Serious: Yes (Hospitalization)
  Sender: FDA-Public Use
  Company Number: AU-AMGEN-AUSSP2019178227

PATIENT
  Age: 70 Year
  Sex: Female

DRUGS (4)
  1. SOZOL [Concomitant]
     Indication: ABDOMINAL DISCOMFORT
     Dosage: UNK
  2. PROLIA [Suspect]
     Active Substance: DENOSUMAB
     Indication: OSTEOPOROSIS
     Dosage: 60 MILLIGRAM, Q6MO
     Route: 065
     Dates: start: 20191016
  3. LOVAN [Concomitant]
     Active Substance: FLUOXETINE HYDROCHLORIDE
     Dosage: 20 MILLIGRAM
  4. MICARDIS [Concomitant]
     Active Substance: TELMISARTAN
     Dosage: UNK

REACTIONS (7)
  - Hot flush [Unknown]
  - Paraesthesia [Unknown]
  - Somatic symptom disorder [Unknown]
  - Pain [Recovered/Resolved]
  - Nausea [Unknown]
  - Vision blurred [Unknown]
  - Headache [Unknown]

NARRATIVE: CASE EVENT DATE: 201910
